FAERS Safety Report 16880504 (Version 3)
Quarter: 2019Q4

REPORT INFORMATION
  Report Type: Spontaneous
  Country: PT (occurrence: PT)
  Receive Date: 20191003
  Receipt Date: 20191102
  Transmission Date: 20200122
  Serious: Yes (Hospitalization, Other)
  Sender: FDA-Public Use
  Company Number: PT-MACLEODS PHARMACEUTICALS US LTD-MAC2019023131

PATIENT

DRUGS (7)
  1. QUETIAPINE 100 MG [Suspect]
     Active Substance: QUETIAPINE
     Indication: INSOMNIA
     Dosage: 100 MILLIGRAM, QD, INTERMEDIATE RELEASE: AT NIGHT
     Route: 048
     Dates: start: 20180308, end: 20180313
  2. FOLATE SODIUM [Concomitant]
     Active Substance: FOLATE SODIUM
     Indication: ANAEMIA
     Dosage: 5 MILLIGRAM, QD
     Route: 065
  3. CARBAMAZEPINE 200 MG [Interacting]
     Active Substance: CARBAMAZEPINE
     Indication: TRIGEMINAL NEURALGIA
     Dosage: 200 MILLIGRAM, QD, INTERMEDIATE RELEASE: AT NIGHT
     Route: 048
  4. RISPERIDONE. [Interacting]
     Active Substance: RISPERIDONE
     Indication: PRODUCT USED FOR UNKNOWN INDICATION
     Dosage: 0.5 MILLIGRAM, QD
     Route: 048
     Dates: start: 20180312, end: 20180313
  5. FERROUS SULFATE. [Concomitant]
     Active Substance: FERROUS SULFATE
     Indication: ANAEMIA
     Dosage: 329.7 MILLIGRAM, QD
     Route: 065
  6. DIAZEPAM. [Interacting]
     Active Substance: DIAZEPAM
     Indication: INSOMNIA
     Dosage: 10 MILLIGRAM, QD, AT NIGHT
     Route: 048
     Dates: start: 20180212, end: 20180313
  7. ENALAPRIL [Concomitant]
     Active Substance: ENALAPRIL
     Indication: HYPERTENSION
     Dosage: 5 MILLIGRAM, QD
     Route: 065

REACTIONS (2)
  - Drug interaction [Recovered/Resolved]
  - Delirium [Recovered/Resolved]

NARRATIVE: CASE EVENT DATE: 2018
